FAERS Safety Report 6151569-0 (Version None)
Quarter: 2009Q2

REPORT INFORMATION
  Report Type: 
  Country: None (occurrence: None)
  Receive Date: 20090410
  Receipt Date: 20090404
  Transmission Date: 20091009
  Serious: Yes (Death)
  Sender: FDA-Public Use
  Company Number: IT-ROCHE-625879

PATIENT
  Age: 62 Year
  Sex: Male

DRUGS (5)
  1. XELODA [Suspect]
     Indication: COLON CANCER
     Dosage: ROUTE: OS, FREQUENCY REPORTED AS CYCLE.
     Route: 048
     Dates: start: 20090220, end: 20090227
  2. XELODA [Suspect]
     Dosage: DOSE REDUCED .
     Route: 048
     Dates: start: 20090227, end: 20090302
  3. AVASTIN [Concomitant]
     Indication: COLON CANCER
     Route: 042
     Dates: start: 20090220, end: 20090220
  4. FOLFOX REGIMEN [Concomitant]
     Dosage: DRUG WITHDRAWN FOR LEUKOPENIA.
  5. IRINOTECAN HCL [Concomitant]

REACTIONS (6)
  - ALOPECIA [None]
  - DIARRHOEA [None]
  - LEUKOPENIA [None]
  - MUCOSAL INFLAMMATION [None]
  - NEUTROPENIA [None]
  - THROMBOCYTOPENIA [None]
